FAERS Safety Report 10408166 (Version 1)
Quarter: 2014Q3

REPORT INFORMATION
  Report Type: Spontaneous
  Country: BR (occurrence: BR)
  Receive Date: 20140826
  Receipt Date: 20140826
  Transmission Date: 20150326
  Serious: Yes (Hospitalization)
  Sender: FDA-Public Use
  Company Number: BR-AMGEN-BRASP2014064504

PATIENT
  Age: 37 Year
  Sex: Female
  Weight: 68 kg

DRUGS (3)
  1. RIVOTRIL [Concomitant]
     Active Substance: CLONAZEPAM
     Dosage: UNK, AT NIGHT
  2. ENBREL [Suspect]
     Active Substance: ETANERCEPT
     Indication: ANKYLOSING SPONDYLITIS
     Dosage: 50 MG ONCE A WEEK
     Route: 065
     Dates: start: 20140703
  3. CITALOPRAM [Concomitant]
     Active Substance: CITALOPRAM HYDROBROMIDE
     Dosage: AT NIGHT

REACTIONS (3)
  - Dysphonia [Unknown]
  - Allergic cough [Unknown]
  - Productive cough [Unknown]

NARRATIVE: CASE EVENT DATE: 2014
